FAERS Safety Report 22124097 (Version 1)
Quarter: 2023Q1

REPORT INFORMATION
  Report Type: Spontaneous
  Country: NL (occurrence: NL)
  Receive Date: 20230322
  Receipt Date: 20230322
  Transmission Date: 20230418
  Serious: Yes (Death)
  Sender: FDA-Public Use
  Company Number: None

PATIENT
  Sex: Male
  Weight: 70 kg

DRUGS (2)
  1. PIRFENIDONE [Suspect]
     Active Substance: PIRFENIDONE
     Indication: Product used for unknown indication
     Dosage: 3 DOSAGE FORM, Q8H (3X3 TABLETTEN) (GENEESMIDDEL VOORGESCHREVEN DOOR ARTS: JA) (TABLET)
     Route: 065
     Dates: start: 20230130
  2. OXYCODONE [Concomitant]
     Active Substance: OXYCODONE
     Indication: Product used for unknown indication
     Dosage: 15 MG (TABLET MET GEREGULEERDE AFGIFTE)
     Route: 065

REACTIONS (3)
  - Fatigue [Fatal]
  - Nausea [Fatal]
  - Decreased appetite [Fatal]
